FAERS Safety Report 13061827 (Version 2)
Quarter: 2017Q2

REPORT INFORMATION
  Report Type: Spontaneous
  Country: US (occurrence: US)
  Receive Date: 20161226
  Receipt Date: 20170502
  Transmission Date: 20170830
  Serious: No
  Sender: FDA-Public Use
  Company Number: US-TEVA-719533ACC

PATIENT
  Age: 51 Year
  Sex: Female

DRUGS (7)
  1. PROVIGIL [Concomitant]
     Active Substance: MODAFINIL
  2. VITAMIN C [Concomitant]
     Active Substance: ASCORBIC ACID
  3. YAZ [Concomitant]
     Active Substance: DROSPIRENONE\ETHINYL ESTRADIOL
  4. COPAXONE [Suspect]
     Active Substance: GLATIRAMER ACETATE
     Indication: MULTIPLE SCLEROSIS
     Route: 058
     Dates: start: 200607
  5. AMANTADINE. [Concomitant]
     Active Substance: AMANTADINE HYDROCHLORIDE
  6. VITAMIN E [Concomitant]
     Active Substance: .ALPHA.-TOCOPHEROL
  7. FISH OIL [Concomitant]
     Active Substance: FISH OIL

REACTIONS (1)
  - Injection site reaction [Not Recovered/Not Resolved]

NARRATIVE: CASE EVENT DATE: 201610
